FAERS Safety Report 4612405-4 (Version None)
Quarter: 2005Q1

REPORT INFORMATION
  Report Type: 
  Country: None (occurrence: None)
  Receive Date: 20050316
  Receipt Date: 20050224
  Transmission Date: 20050727
  Serious: Yes (Death, Other)
  Sender: FDA-Public Use
  Company Number: US_0502113399

PATIENT
  Age: 72 Year
  Sex: Male
  Weight: 59 kg

DRUGS (4)
  1. PEMETREXED [Suspect]
     Indication: TRANSITIONAL CELL CARCINOMA
     Dosage: 500 MG/M2
     Dates: start: 20050111, end: 20050111
  2. GEMCITABINE HYDROCHLORIDE-IV (GEMCITABINE) [Suspect]
     Indication: TRANSITIONAL CELL CARCINOMA
     Dosage: 1000 MG/M2
     Dates: start: 20050111, end: 20050111
  3. VITAMIN B-12 [Concomitant]
  4. FOLIC ACID [Concomitant]

REACTIONS (11)
  - ASTHENIA [None]
  - BLOOD ALKALINE PHOSPHATASE ABNORMAL [None]
  - BLOOD BILIRUBIN ABNORMAL [None]
  - BLOOD CREATININE ABNORMAL [None]
  - FATIGUE [None]
  - HYPERKALAEMIA [None]
  - HYPOALBUMINAEMIA [None]
  - HYPOCALCAEMIA [None]
  - LEUKOPENIA [None]
  - LYMPHOPENIA [None]
  - NEUTROPENIA [None]
